FAERS Safety Report 17693564 (Version 5)
Quarter: 2020Q4

REPORT INFORMATION
  Report Type: Report from Study
  Country: US (occurrence: US)
  Receive Date: 20200422
  Receipt Date: 20201006
  Transmission Date: 20210113
  Serious: Yes (Other)
  Sender: FDA-Public Use
  Company Number: US-PUMA BIOTECHNOLOGY, LTD.-2019US009261

PATIENT

DRUGS (4)
  1. NERLYNX [Suspect]
     Active Substance: NERATINIB
     Dosage: 160 MG, DAILY
     Route: 048
     Dates: start: 20191101, end: 20200317
  2. NERLYNX [Suspect]
     Active Substance: NERATINIB
     Dosage: 160 MG, DAILY
     Route: 048
     Dates: start: 20200318, end: 20200831
  3. NERLYNX [Suspect]
     Active Substance: NERATINIB
     Indication: BREAST CANCER
     Dosage: 80 MG, DAILY
     Route: 048
     Dates: start: 20190827, end: 20191002
  4. NERLYNX [Suspect]
     Active Substance: NERATINIB
     Dosage: 120 MG, DAILY
     Route: 048
     Dates: start: 20191003, end: 2019

REACTIONS (32)
  - Diarrhoea [Not Recovered/Not Resolved]
  - Confusional state [Not Recovered/Not Resolved]
  - Hypoaesthesia [Not Recovered/Not Resolved]
  - Fatigue [Not Recovered/Not Resolved]
  - Fall [Unknown]
  - Frustration tolerance decreased [Unknown]
  - Pain [Unknown]
  - Abdominal pain [Not Recovered/Not Resolved]
  - Weight decreased [Unknown]
  - Depression [Unknown]
  - Vomiting [Unknown]
  - Memory impairment [Unknown]
  - Impaired quality of life [Not Recovered/Not Resolved]
  - Dyspnoea exertional [Unknown]
  - Alopecia [Not Recovered/Not Resolved]
  - Bone pain [Unknown]
  - Panic attack [Unknown]
  - Somnolence [Unknown]
  - Pain in extremity [Not Recovered/Not Resolved]
  - Renal impairment [Unknown]
  - Blood sodium decreased [Unknown]
  - Hyperhidrosis [Unknown]
  - Nausea [Unknown]
  - Product dose omission issue [Unknown]
  - Haematochezia [Unknown]
  - Urinary tract infection [Unknown]
  - Dehydration [Unknown]
  - Dysuria [Unknown]
  - Blood iron decreased [Unknown]
  - Tremor [Unknown]
  - Muscle spasms [Unknown]
  - Drug titration [Unknown]

NARRATIVE: CASE EVENT DATE: 2019
